FAERS Safety Report 5259583-4 (Version None)
Quarter: 2007Q1

REPORT INFORMATION
  Report Type: 
  Country: None (occurrence: None)
  Receive Date: 20070306
  Receipt Date: 20070220
  Transmission Date: 20070707
  Serious: Yes (Other)
  Sender: FDA-Public Use
  Company Number: 2007SP003229

PATIENT
  Age: 50 Year
  Sex: Female

DRUGS (2)
  1. VIRAFERONPEG [Suspect]
  2. REBETOL [Suspect]

REACTIONS (2)
  - HEPATIC CIRRHOSIS [None]
  - HEPATIC NEOPLASM MALIGNANT [None]
